FAERS Safety Report 25279801 (Version 2)
Quarter: 2025Q2

REPORT INFORMATION
  Report Type: Spontaneous
  Country: US (occurrence: US)
  Receive Date: 20250507
  Receipt Date: 20250605
  Transmission Date: 20250716
  Serious: No
  Sender: GE HEALTHCARE
  Company Number: US-GE HEALTHCARE-2025CSU005586

PATIENT
  Age: 82 Year
  Sex: Female

DRUGS (9)
  1. DATSCAN [Suspect]
     Active Substance: IODINE\IOFLUPANE I-123
     Indication: Diagnostic procedure
     Route: 065
     Dates: start: 20250429, end: 20250429
  2. DATSCAN [Suspect]
     Active Substance: IODINE\IOFLUPANE I-123
     Route: 065
     Dates: start: 20250516, end: 20250516
  3. MELATONIN [Concomitant]
     Active Substance: MELATONIN
     Dosage: 10 MG, QD
     Route: 048
  4. DONEPEZIL [Concomitant]
     Active Substance: DONEPEZIL
     Route: 048
  5. ATORVASTATIN [Concomitant]
     Active Substance: ATORVASTATIN
     Route: 048
  6. ALENDRONATE SODIUM [Concomitant]
     Active Substance: ALENDRONATE SODIUM
     Route: 048
  7. LEVOTHYROXINE SODIUM [Concomitant]
     Active Substance: LEVOTHYROXINE SODIUM
     Route: 048
  8. CALCIUM [Concomitant]
     Active Substance: CALCIUM
     Route: 048
  9. VITAMINS [Concomitant]
     Active Substance: VITAMINS
     Route: 048

REACTIONS (3)
  - Drug ineffective [Recovered/Resolved]
  - Drug ineffective [Recovered/Resolved]
  - No adverse event [Recovered/Resolved]

NARRATIVE: CASE EVENT DATE: 20250429
